FAERS Safety Report 14785899 (Version 2)
Quarter: 2018Q2

REPORT INFORMATION
  Report Type: Spontaneous
  Country: US (occurrence: US)
  Receive Date: 20180420
  Receipt Date: 20180607
  Transmission Date: 20180711
  Serious: No
  Sender: FDA-Public Use
  Company Number: US-AKRON, INC.-2046177

PATIENT
  Sex: Female

DRUGS (1)
  1. THERATEARS [Suspect]
     Active Substance: CARBOXYMETHYLCELLULOSE SODIUM
     Route: 047

REACTIONS (5)
  - Instillation site foreign body sensation [Unknown]
  - Eye infection [Unknown]
  - Eye pain [Not Recovered/Not Resolved]
  - Eyelid oedema [Not Recovered/Not Resolved]
  - Vision blurred [Recovering/Resolving]
